FAERS Safety Report 25401428 (Version 1)
Quarter: 2025Q2

REPORT INFORMATION
  Report Type: Report from Study
  Country: FR (occurrence: FR)
  Receive Date: 20250605
  Receipt Date: 20250605
  Transmission Date: 20250717
  Serious: Yes (Other)
  Sender: PFIZER
  Company Number: FR-ROCHE-10000287719

PATIENT

DRUGS (3)
  1. PEMETREXED [Suspect]
     Active Substance: PEMETREXED
     Indication: Neoplasm malignant
     Dosage: DATE OF MOST RECENT DOSE OF CANCER TREATMENTPRIOR TO AE/SAE ONSET: 05-JAN-2024
     Route: 042
     Dates: start: 20230929
  2. CARBOPLATIN [Suspect]
     Active Substance: CARBOPLATIN
     Indication: Neoplasm malignant
     Dosage: DATE OF MOST RECENT DOSE OF CANCER TREATMENTPRIOR TO AE/SAE ONSET 13-DEC-2023
     Route: 042
     Dates: start: 20230929
  3. PEMBROLIZUMAB [Suspect]
     Active Substance: PEMBROLIZUMAB
     Indication: Neoplasm malignant
     Dosage: DATE OF MOST RECENT DOSE OF CANCER TREATMENTPRIOR TO AE/SAE ONSET: 05-JAN-2024
     Route: 042
     Dates: start: 20230929

REACTIONS (1)
  - Hepatitis [Recovered/Resolved]

NARRATIVE: CASE EVENT DATE: 20240205
